FAERS Safety Report 7104870-8 (Version None)
Quarter: 2010Q4

REPORT INFORMATION
  Report Type: 
  Country: None (occurrence: None)
  Receive Date: 20101116
  Receipt Date: 20101111
  Transmission Date: 20110411
  Serious: Yes (Hospitalization, Other)
  Sender: FDA-Public Use
  Company Number: US-BRISTOL-MYERS SQUIBB COMPANY-15382237

PATIENT
  Age: 67 Year
  Sex: Male

DRUGS (4)
  1. COUMADIN [Suspect]
     Indication: DEEP VEIN THROMBOSIS
     Route: 065
     Dates: start: 20100709
  2. COUMADIN [Suspect]
     Indication: ATRIAL FIBRILLATION
     Route: 065
     Dates: start: 20100709
  3. REVLIMID [Suspect]
     Indication: MULTIPLE MYELOMA
     Dosage: FORM:CAPS DAILY FOR 21 DAYS EXPIRY DATE:31MAY12
     Route: 048
     Dates: start: 20100115
  4. ZOMETA [Concomitant]
     Indication: BACK PAIN

REACTIONS (3)
  - BACK PAIN [None]
  - ECCHYMOSIS [None]
  - SKIN ATROPHY [None]
